FAERS Safety Report 9742114 (Version 1)
Quarter: 2013Q4

REPORT INFORMATION
  Report Type: Spontaneous
  Country: US (occurrence: US)
  Receive Date: 20131210
  Receipt Date: 20131210
  Transmission Date: 20140711
  Serious: No
  Sender: FDA-Public Use
  Company Number: US-ENDO PHARMACEUTICALS INC.-CARI20130004

PATIENT
  Age: 86 Year
  Sex: Female

DRUGS (5)
  1. CARISOPRODOL TABLETS 350MG [Suspect]
     Indication: FIBROMYALGIA
     Route: 048
     Dates: start: 20130406
  2. CARISOPRODOL TABLETS 350MG [Suspect]
     Indication: MUSCLE RELAXANT THERAPY
  3. CLONIDINE [Concomitant]
     Indication: HYPERTENSION
     Dosage: UNK
     Route: 065
     Dates: start: 201204
  4. CARISOPRODOL [Concomitant]
     Indication: FIBROMYALGIA
     Route: 048
     Dates: end: 201304
  5. CARISOPRODOL [Concomitant]
     Indication: MUSCLE RELAXANT THERAPY

REACTIONS (2)
  - Nightmare [Not Recovered/Not Resolved]
  - Drug ineffective [Not Recovered/Not Resolved]
